FAERS Safety Report 12218320 (Version 2)
Quarter: 2016Q2

REPORT INFORMATION
  Report Type: Spontaneous
  Country: US (occurrence: US)
  Receive Date: 20160329
  Receipt Date: 20160428
  Transmission Date: 20160815
  Serious: Yes (Hospitalization, Other)
  Sender: FDA-Public Use
  Company Number: US-PFIZER INC-2016176011

PATIENT
  Age: 37 Year
  Sex: Female

DRUGS (3)
  1. TOFRANIL [Suspect]
     Active Substance: IMIPRAMINE HYDROCHLORIDE
     Dosage: ABOUT 100 TABLETS (25MG), UNK
  2. PROPANOLOL HCL [Suspect]
     Active Substance: PROPRANOLOL HYDROCHLORIDE
     Dosage: 80 TABLETS (10MG), UNK
  3. VALIUM [Suspect]
     Active Substance: DIAZEPAM
     Dosage: A QUESTIONABLE AMOUNT (100 MG), UNK

REACTIONS (5)
  - Overdose [Unknown]
  - Hypotension [Recovered/Resolved]
  - Bradycardia [Recovered/Resolved]
  - Coma [Unknown]
  - Cardiac failure [Unknown]
